FAERS Safety Report 18069725 (Version 4)
Quarter: 2021Q4

REPORT INFORMATION
  Report Type: Spontaneous
  Country: US (occurrence: US)
  Receive Date: 20200727
  Receipt Date: 20211019
  Transmission Date: 20220303
  Serious: No
  Sender: FDA-Public Use
  Company Number: US-BIOGEN-2020BI00893230

PATIENT
  Age: 47 Year
  Sex: Female

DRUGS (5)
  1. VUMERITY [Suspect]
     Active Substance: DIROXIMEL FUMARATE
     Indication: Multiple sclerosis
     Route: 065
     Dates: start: 20200626
  2. VUMERITY [Suspect]
     Active Substance: DIROXIMEL FUMARATE
     Route: 065
  3. VUMERITY [Suspect]
     Active Substance: DIROXIMEL FUMARATE
     Route: 048
     Dates: start: 202006
  4. VUMERITY [Suspect]
     Active Substance: DIROXIMEL FUMARATE
     Route: 048
     Dates: start: 202007
  5. VUMERITY [Suspect]
     Active Substance: DIROXIMEL FUMARATE
     Route: 048
     Dates: start: 20200722

REACTIONS (12)
  - Drug ineffective [Unknown]
  - Dry skin [Unknown]
  - Confusional state [Unknown]
  - Discomfort [Unknown]
  - Product container issue [Unknown]
  - White blood cell count decreased [Unknown]
  - Hot flush [Unknown]
  - Pruritus [Recovered/Resolved]
  - Erythema [Recovered/Resolved]
  - Flushing [Not Recovered/Not Resolved]
  - Pruritus [Unknown]
  - Lymphocyte count decreased [Unknown]

NARRATIVE: CASE EVENT DATE: 20200626
